FAERS Safety Report 9253949 (Version 2)
Quarter: 2013Q2

REPORT INFORMATION
  Report Type: Spontaneous
  Country: US (occurrence: None)
  Receive Date: 20130419
  Receipt Date: 20130430
  Transmission Date: 20140414
  Serious: Yes (Disabling, Other)
  Sender: FDA-Public Use
  Company Number: ACO_35476_2013

PATIENT
  Age: 77 Year
  Sex: Female

DRUGS (5)
  1. AMPYRA [Suspect]
     Indication: PRODUCT USED FOR UNKNOWN INDICATION
     Dates: end: 20130405
  2. NEURONTIN (GABAPENTIN) [Concomitant]
  3. DETROL LA (TOLTERODINE L-TARTRATE) [Concomitant]
  4. CYMBALTA (DULOXETINE HYDROCHLORIDE) [Concomitant]
  5. MEXILETINE HCL (MEXILETINE HYDROCHLORIDE) [Concomitant]

REACTIONS (5)
  - Dysstasia [None]
  - Movement disorder [None]
  - Malaise [None]
  - Abasia [None]
  - Asthenia [None]
